FAERS Safety Report 5682620-X (Version None)
Quarter: 2008Q1

REPORT INFORMATION
  Report Type: 
  Country: None (occurrence: None)
  Receive Date: 20080327
  Receipt Date: 20080317
  Transmission Date: 20080703
  Serious: Yes (Other)
  Sender: FDA-Public Use
  Company Number: US-AMGEN-QUU268096

PATIENT
  Sex: Male
  Weight: 85.8 kg

DRUGS (2)
  1. ENBREL [Suspect]
     Indication: PSORIATIC ARTHROPATHY
     Route: 058
     Dates: start: 20040701, end: 20080215
  2. ENBREL [Suspect]
     Indication: PSORIASIS

REACTIONS (1)
  - UVEITIS [None]
